FAERS Safety Report 7425340-3 (Version None)
Quarter: 2011Q1

REPORT INFORMATION
  Report Type: 
  Country: None (occurrence: None)
  Receive Date: 20110302
  Receipt Date: 20101109
  Transmission Date: 20110831
  Serious: No
  Sender: FDA-Public Use
  Company Number: 017466

PATIENT
  Sex: Male

DRUGS (2)
  1. CIMZIA [Suspect]
  2. CIMZIA [Suspect]
     Indication: CROHN'S DISEASE
     Dosage: (400 MG 1X/4 WEEKS SUBCUTANEOUS), (400 MG 1X/4 WEEKS SUBCUTANEOUS)
     Route: 058
     Dates: start: 20081121

REACTIONS (2)
  - ARTHRALGIA [None]
  - FATIGUE [None]
